FAERS Safety Report 8396404-5 (Version None)
Quarter: 2012Q2

REPORT INFORMATION
  Report Type: 
  Country: None (occurrence: None)
  Receive Date: 20120530
  Receipt Date: 20120522
  Transmission Date: 20120825
  Serious: Yes (Hospitalization)
  Sender: FDA-Public Use
  Company Number: US-MERCK-1108USA03118

PATIENT
  Age: 66 Year
  Sex: Female
  Weight: 62 kg

DRUGS (16)
  1. CALCIUM (UNSPECIFIED) [Concomitant]
     Route: 065
     Dates: start: 19960101
  2. FOSAMAX [Suspect]
     Indication: OSTEOPENIA
     Route: 048
     Dates: start: 19970909, end: 20040501
  3. FOSAMAX PLUS D [Suspect]
     Indication: OSTEOPENIA
     Route: 048
     Dates: start: 20060706, end: 20061201
  4. SYNTHROID [Concomitant]
     Indication: HYPOTHYROIDISM
     Route: 065
  5. ASCORBIC ACID [Concomitant]
     Route: 065
  6. FOSAMAX [Suspect]
     Route: 048
     Dates: start: 20040521, end: 20050525
  7. ESTRACE [Concomitant]
     Indication: POSTMENOPAUSE
     Route: 048
  8. CHLOR-TRIMETON [Concomitant]
     Indication: SEASONAL ALLERGY
     Route: 048
  9. BONIVA [Suspect]
     Indication: OSTEOPENIA
     Route: 048
     Dates: start: 20050829, end: 20091204
  10. ONE-A-DAY ESSENTIAL VITAMINS [Concomitant]
     Route: 065
  11. VITAMIN E [Concomitant]
     Route: 065
  12. PYRIDOXINE [Concomitant]
     Route: 065
  13. HYZAAR [Concomitant]
     Route: 065
  14. VITAMIN D (UNSPECIFIED) [Concomitant]
     Route: 065
  15. MIACALCIN [Concomitant]
     Route: 065
  16. PROVERA [Concomitant]
     Indication: HORMONE REPLACEMENT THERAPY
     Route: 048

REACTIONS (29)
  - GASTROINTESTINAL MOTILITY DISORDER [None]
  - FIBROCYSTIC BREAST DISEASE [None]
  - MUCOSAL INFLAMMATION [None]
  - VITAMIN D DECREASED [None]
  - POLLAKIURIA [None]
  - BREAST MASS [None]
  - EXOSTOSIS [None]
  - MUSCULOSKELETAL DISCOMFORT [None]
  - ABDOMINAL PAIN [None]
  - LUMBAR SPINAL STENOSIS [None]
  - DIVERTICULUM [None]
  - ALANINE AMINOTRANSFERASE INCREASED [None]
  - TENDON DISORDER [None]
  - ELECTROCARDIOGRAM ST-T CHANGE [None]
  - TACHYCARDIA [None]
  - ARTHRALGIA [None]
  - NERVE ROOT COMPRESSION [None]
  - INTERVERTEBRAL DISC PROTRUSION [None]
  - SPONDYLOLISTHESIS [None]
  - FALL [None]
  - MUSCLE STRAIN [None]
  - COLON ADENOMA [None]
  - ADENOMA BENIGN [None]
  - HELICOBACTER GASTRITIS [None]
  - INTERVERTEBRAL DISC DEGENERATION [None]
  - FEMUR FRACTURE [None]
  - OSTEOPOROSIS [None]
  - WRIST FRACTURE [None]
  - FIBULA FRACTURE [None]
